FAERS Safety Report 5814948-4 (Version None)
Quarter: 2008Q3

REPORT INFORMATION
  Report Type: 
  Country: None (occurrence: None)
  Receive Date: 20080718
  Receipt Date: 20080709
  Transmission Date: 20090109
  Serious: Yes (Hospitalization, Other)
  Sender: FDA-Public Use
  Company Number: PHHY2008FR13707

PATIENT

DRUGS (3)
  1. VOLTAREN [Suspect]
     Indication: POISONING
     Dosage: UNK
     Dates: start: 20080424
  2. DAFALGAN [Suspect]
     Indication: POISONING
     Dosage: 8 DF, ONCE/SINGLE
     Route: 048
     Dates: start: 20080424
  3. SURGAM [Suspect]
     Indication: POISONING
     Dosage: UNK
     Dates: start: 20080424

REACTIONS (5)
  - ABDOMINAL PAIN [None]
  - BLOOD CREATININE INCREASED [None]
  - RENAL FAILURE [None]
  - SUICIDE ATTEMPT [None]
  - VOMITING [None]
